FAERS Safety Report 4837784-4 (Version None)
Quarter: 2005Q4

REPORT INFORMATION
  Report Type: 
  Country: None (occurrence: None)
  Receive Date: 20051024
  Receipt Date: 20050706
  Transmission Date: 20060501
  Serious: No
  Sender: FDA-Public Use
  Company Number: 215548

PATIENT
  Age: 62 Year
  Sex: Female
  Weight: 71.7 kg

DRUGS (7)
  1. XOLAIR [Suspect]
     Indication: ASTHMA
     Dosage: 225, Q2, SUBCUTANEOUS
     Route: 058
     Dates: start: 20041209
  2. ITRACONAZOLE [Concomitant]
  3. PREDNISONE [Concomitant]
  4. PULMICORT [Concomitant]
  5. BUMEX [Concomitant]
  6. VALIUM [Concomitant]
  7. ACTONEL [Concomitant]

REACTIONS (2)
  - CONJUNCTIVITIS [None]
  - URINARY TRACT INFECTION [None]
